FAERS Safety Report 15294929 (Version 1)
Quarter: 2018Q3

REPORT INFORMATION
  Report Type: Spontaneous
  Country: US (occurrence: US)
  Receive Date: 20180820
  Receipt Date: 20180820
  Transmission Date: 20181010
  Serious: No
  Sender: FDA-Public Use
  Company Number: US-SUNOVION-2018SUN003069

PATIENT
  Age: 47 Year
  Sex: Female
  Weight: 95.24 kg

DRUGS (3)
  1. CLOZARIL [Concomitant]
     Active Substance: CLOZAPINE
  2. LATUDA [Suspect]
     Active Substance: LURASIDONE HYDROCHLORIDE
     Indication: SCHIZOAFFECTIVE DISORDER BIPOLAR TYPE
     Dosage: 40 MG, QD
     Route: 048
     Dates: start: 20170621, end: 201807
  3. LATUDA [Suspect]
     Active Substance: LURASIDONE HYDROCHLORIDE
     Dosage: 60 MG, QD
     Route: 048
     Dates: start: 201807

REACTIONS (6)
  - Hypoaesthesia [Unknown]
  - Nausea [Unknown]
  - Initial insomnia [Unknown]
  - Off label use [Not Recovered/Not Resolved]
  - Palpitations [Unknown]
  - Mania [Unknown]
